FAERS Safety Report 6274228-2 (Version None)
Quarter: 2009Q3

REPORT INFORMATION
  Report Type: 
  Country: None (occurrence: None)
  Receive Date: 20090720
  Receipt Date: 20070912
  Transmission Date: 20100115
  Serious: Yes (Hospitalization)
  Sender: FDA-Public Use
  Company Number: DE-PFIZER INC-2007076241

PATIENT
  Age: 66 Year

DRUGS (8)
  1. BLINDED *NO SUBJECT DRUG [Suspect]
     Indication: HIV TEST POSITIVE
     Dosage: 150 MG, 1X/DAY
     Route: 048
     Dates: start: 20050712
  2. BLINDED *PLACEBO [Suspect]
     Indication: HIV TEST POSITIVE
     Dosage: 150 MG, 1X/DAY
     Route: 048
     Dates: start: 20050712
  3. BLINDED MARAVIROC [Suspect]
     Indication: HIV TEST POSITIVE
     Dosage: 150 MG, 1X/DAY
     Route: 048
     Dates: start: 20050712
  4. REYATAZ [Concomitant]
     Route: 048
     Dates: start: 20050829
  5. NORVIR [Concomitant]
     Route: 048
     Dates: start: 20050712
  6. TRUVADA [Concomitant]
     Route: 048
     Dates: start: 20050712
  7. SYMBICORT [Concomitant]
     Route: 048
     Dates: start: 20060614
  8. SPIRIVA [Concomitant]
     Dates: start: 20060614

REACTIONS (1)
  - PROSTATE CANCER [None]
